FAERS Safety Report 12536237 (Version 1)
Quarter: 2016Q3

REPORT INFORMATION
  Report Type: Report from Study
  Country: KR (occurrence: KR)
  Receive Date: 20160707
  Receipt Date: 20160707
  Transmission Date: 20161109
  Serious: Yes (Hospitalization)
  Sender: FDA-Public Use
  Company Number: KR-NOVOPROD-498670

PATIENT
  Age: 71 Year
  Sex: Female

DRUGS (4)
  1. LEVEMIR [Suspect]
     Active Substance: INSULIN DETEMIR
     Indication: DIABETES MELLITUS
     Dosage: 20 U, QD
     Route: 058
  2. DIABEX [Concomitant]
     Active Substance: METFORMIN HYDROCHLORIDE
     Indication: DIABETES MELLITUS
  3. LEVEMIR [Suspect]
     Active Substance: INSULIN DETEMIR
     Dosage: 16 U, QD
     Route: 058
  4. GLUCOBAY [Concomitant]
     Active Substance: ACARBOSE
     Indication: DIABETES MELLITUS

REACTIONS (1)
  - Diabetes mellitus management [Recovered/Resolved]
